FAERS Safety Report 7827833-3 (Version None)
Quarter: 2011Q4

REPORT INFORMATION
  Report Type: 
  Country: None (occurrence: None)
  Receive Date: 20111020
  Receipt Date: 20111007
  Transmission Date: 20120403
  Serious: Yes (Hospitalization, Other)
  Sender: FDA-Public Use
  Company Number: MY-ELI_LILLY_AND_COMPANY-MY201109006540

PATIENT
  Age: 75 Year
  Sex: Female

DRUGS (3)
  1. FORTEO [Suspect]
     Indication: OSTEOPOROSIS
     Dosage: 20 UG, UNK
     Dates: start: 20110920
  2. NORGESIC                           /00070401/ [Concomitant]
  3. CALCIUM CARBONATE [Concomitant]

REACTIONS (6)
  - STRESS [None]
  - HAEMOGLOBIN DECREASED [None]
  - GASTRIC HAEMORRHAGE [None]
  - VOMITING [None]
  - GASTRITIS EROSIVE [None]
  - NAUSEA [None]
